FAERS Safety Report 11750779 (Version 1)
Quarter: 2015Q4

REPORT INFORMATION
  Report Type: Spontaneous
  Country: US (occurrence: US)
  Receive Date: 20151118
  Receipt Date: 20151118
  Transmission Date: 20160304
  Serious: Yes (Death)
  Sender: FDA-Public Use
  Company Number: US-ALKERMES INC.-ALK-2015-001403

PATIENT

DRUGS (1)
  1. VIVITROL [Suspect]
     Active Substance: NALTREXONE
     Indication: DRUG DEPENDENCE
     Dosage: 380 MG, QMO
     Route: 058
     Dates: start: 20150901

REACTIONS (3)
  - Drug abuse [Recovered/Resolved]
  - Overdose [Fatal]
  - Drug dose omission [None]

NARRATIVE: CASE EVENT DATE: 20151031
